FAERS Safety Report 8400050-4 (Version None)
Quarter: 2012Q2

REPORT INFORMATION
  Report Type: 
  Country: None (occurrence: None)
  Receive Date: 20120531
  Receipt Date: 20120521
  Transmission Date: 20120825
  Serious: Yes (Death)
  Sender: FDA-Public Use
  Company Number: JP-ROCHE-1030710

PATIENT
  Sex: Male

DRUGS (7)
  1. FAMOGAST [Concomitant]
     Indication: GASTROOESOPHAGEAL REFLUX DISEASE
     Route: 048
     Dates: start: 20110820
  2. MAGNESIUM OXIDE [Concomitant]
     Indication: CONSTIPATION
     Dosage: AMOUNT 3
     Route: 048
     Dates: start: 20110820
  3. FUROSEMIDE [Concomitant]
     Indication: CARDIAC FAILURE CHRONIC
     Route: 048
     Dates: start: 20110820
  4. DEPAKENE [Concomitant]
     Indication: EPILEPSY
     Route: 048
     Dates: start: 20111124
  5. MIRCERA [Suspect]
     Indication: NEPHROGENIC ANAEMIA
     Route: 058
     Dates: start: 20111129, end: 20111213
  6. DIOVAN [Concomitant]
     Indication: CARDIAC FAILURE CHRONIC
     Route: 048
     Dates: start: 20110820
  7. EC-DOPARL [Concomitant]
     Indication: VASCULAR PARKINSONISM
     Route: 048
     Dates: start: 20110820

REACTIONS (2)
  - RESPIRATORY FAILURE [None]
  - PNEUMONIA [None]
